FAERS Safety Report 9381957 (Version 1)
Quarter: 2013Q3

REPORT INFORMATION
  Report Type: Report from Study
  Country: RU (occurrence: RU)
  Receive Date: 20130703
  Receipt Date: 20130703
  Transmission Date: 20140515
  Serious: Yes (Death)
  Sender: FDA-Public Use
  Company Number: RU-ROCHE-1244429

PATIENT
  Sex: Female

DRUGS (2)
  1. RITUXIMAB [Suspect]
     Indication: SJOGREN^S SYNDROME
     Route: 042
  2. CYCLOPHOSPHAMIDE [Suspect]
     Indication: SJOGREN^S SYNDROME
     Route: 042

REACTIONS (4)
  - Generalised oedema [Fatal]
  - Pancytopenia [Fatal]
  - Pneumonia [Fatal]
  - Pseudomembranous colitis [Fatal]
